FAERS Safety Report 13274994 (Version 2)
Quarter: 2018Q3

REPORT INFORMATION
  Report Type: Spontaneous
  Country: SG (occurrence: SG)
  Receive Date: 20170227
  Receipt Date: 20180809
  Transmission Date: 20181010
  Serious: No
  Sender: FDA-Public Use
  Company Number: SG-AMGEN-SGPSP2017029522

PATIENT
  Age: 69 Year
  Sex: Male

DRUGS (1)
  1. REGPARA [Suspect]
     Active Substance: CINACALCET HYDROCHLORIDE
     Indication: PRODUCT USED FOR UNKNOWN INDICATION
     Dosage: UNK
     Route: 065

REACTIONS (2)
  - Face oedema [Unknown]
  - Rash [Unknown]

NARRATIVE: CASE EVENT DATE: 20170106
